FAERS Safety Report 4555119-1 (Version None)
Quarter: 2004Q4

REPORT INFORMATION
  Report Type: 
  Country: None (occurrence: None)
  Receive Date: 20041217
  Receipt Date: 20040811
  Transmission Date: 20050328
  Serious: No
  Sender: FDA-Public Use
  Company Number: 2004-BP-05577BP

PATIENT
  Age: 76 Year
  Sex: Female

DRUGS (11)
  1. SPIRIVA [Suspect]
     Indication: CHRONIC OBSTRUCTIVE AIRWAYS DISEASE
     Dosage: 18 MCG (18 MCG), IH
     Route: 055
     Dates: start: 20040521, end: 20040707
  2. ATROVENT [Concomitant]
  3. FORADIL [Concomitant]
  4. XOPENEX [Concomitant]
  5. PREDNISONE [Concomitant]
  6. XANAX [Concomitant]
  7. ZOLOFT [Concomitant]
  8. SYNTHROID [Concomitant]
  9. VIOXX [Concomitant]
  10. HYZAAR [Concomitant]
  11. LIPITOR [Concomitant]

REACTIONS (3)
  - COUGH [None]
  - HEART RATE DECREASED [None]
  - OROPHARYNGEAL SWELLING [None]
